FAERS Safety Report 16155151 (Version 1)
Quarter: 2019Q2

REPORT INFORMATION
  Report Type: Spontaneous
  Country: IT (occurrence: IT)
  Receive Date: 20190403
  Receipt Date: 20190403
  Transmission Date: 20190711
  Serious: Yes (Hospitalization)
  Sender: FDA-Public Use
  Company Number: IT-MYLANLABS-2019M1031315

PATIENT
  Age: 80 Year
  Sex: Female

DRUGS (1)
  1. CLOZAPINE. [Suspect]
     Active Substance: CLOZAPINE
     Indication: PSYCHOTIC DISORDER
     Dosage: 25 MILLIGRAM, QD
     Route: 048
     Dates: start: 20181101, end: 20190228

REACTIONS (3)
  - Irritability [Unknown]
  - Psychomotor hyperactivity [Unknown]
  - Aggression [Unknown]

NARRATIVE: CASE EVENT DATE: 20181231
